FAERS Safety Report 6444433-0 (Version None)
Quarter: 2009Q4

REPORT INFORMATION
  Report Type: 
  Country: None (occurrence: None)
  Receive Date: 20091117
  Receipt Date: 20091117
  Transmission Date: 20100525
  Serious: Yes (Life-Threatening, Hospitalization)
  Sender: FDA-Public Use
  Company Number: None

PATIENT
  Age: 60 Year
  Sex: Female
  Weight: 52.6173 kg

DRUGS (1)
  1. ALEVE (CAPLET) [Suspect]
     Indication: HEADACHE
     Dosage: 2 OCCASIONALLY OTHER
     Dates: start: 20091115, end: 20091115

REACTIONS (3)
  - BURNING SENSATION [None]
  - DRUG HYPERSENSITIVITY [None]
  - SKIN BURNING SENSATION [None]
